FAERS Safety Report 16700881 (Version 1)
Quarter: 2019Q3

REPORT INFORMATION
  Report Type: Spontaneous
  Country: US (occurrence: US)
  Receive Date: 20190814
  Receipt Date: 20190814
  Transmission Date: 20191004
  Serious: Yes (Hospitalization, Other)
  Sender: FDA-Public Use
  Company Number: US-CONCORDIA PHARMACEUTICALS INC.-GSH201908-001872

PATIENT
  Age: 23 Year
  Sex: Female

DRUGS (11)
  1. AZITHROMYCIN ANHYDROUS. [Suspect]
     Active Substance: AZITHROMYCIN ANHYDROUS
     Route: 042
  2. CEFOXITIN [Suspect]
     Active Substance: CEFOXITIN SODIUM
     Indication: MYCOBACTERIUM AVIUM COMPLEX INFECTION
     Route: 042
  3. HYDROXYCHLOROQUINE [Suspect]
     Active Substance: HYDROXYCHLOROQUINE
     Indication: SYSTEMIC LUPUS ERYTHEMATOSUS
     Route: 065
  4. TIGECYCLINE. [Suspect]
     Active Substance: TIGECYCLINE
     Indication: MYCOBACTERIUM AVIUM COMPLEX INFECTION
     Route: 042
  5. CLOFAZIMINE [Suspect]
     Active Substance: CLOFAZIMINE
     Indication: MYCOBACTERIUM AVIUM COMPLEX INFECTION
     Route: 065
  6. MYCOPHENOLATE MOFETIL. [Suspect]
     Active Substance: MYCOPHENOLATE MOFETIL
     Indication: SYSTEMIC LUPUS ERYTHEMATOSUS
     Route: 065
  7. AZITHROMYCIN ANHYDROUS. [Suspect]
     Active Substance: AZITHROMYCIN ANHYDROUS
     Indication: MYCOBACTERIUM AVIUM COMPLEX INFECTION
     Route: 048
  8. LINEZOLID. [Suspect]
     Active Substance: LINEZOLID
     Indication: MYCOBACTERIUM AVIUM COMPLEX INFECTION
     Route: 042
  9. AMIKACIN SULFATE. [Suspect]
     Active Substance: AMIKACIN SULFATE
     Indication: MYCOBACTERIUM AVIUM COMPLEX INFECTION
     Dosage: PARENTERAL AMIKACIN
     Route: 042
  10. AMIKACIN SULFATE. [Suspect]
     Active Substance: AMIKACIN SULFATE
     Dosage: IMPLANTATION OF AMIKACIN BEADS
  11. LINEZOLID. [Suspect]
     Active Substance: LINEZOLID
     Route: 048

REACTIONS (8)
  - Arthritis bacterial [Not Recovered/Not Resolved]
  - Atypical mycobacterial infection [Not Recovered/Not Resolved]
  - Mycobacterium avium complex infection [Not Recovered/Not Resolved]
  - Nephropathy toxic [Unknown]
  - Treatment failure [Unknown]
  - Subcutaneous abscess [Not Recovered/Not Resolved]
  - Disease recurrence [Not Recovered/Not Resolved]
  - Osteomyelitis [Not Recovered/Not Resolved]
